FAERS Safety Report 7979089-9 (Version None)
Quarter: 2011Q4

REPORT INFORMATION
  Report Type: 
  Country: None (occurrence: None)
  Receive Date: 20111214
  Receipt Date: 20111208
  Transmission Date: 20120403
  Serious: No
  Sender: FDA-Public Use
  Company Number: US-PFIZER INC-2011259392

PATIENT
  Sex: Male

DRUGS (1)
  1. SUTENT [Suspect]
     Indication: RENAL CANCER
     Dosage: 37.5 MG, UNK
     Dates: start: 20111013

REACTIONS (4)
  - FATIGUE [None]
  - DIARRHOEA [None]
  - CONSTIPATION [None]
  - DECREASED APPETITE [None]
